FAERS Safety Report 12270825 (Version 3)
Quarter: 2016Q4

REPORT INFORMATION
  Report Type: Spontaneous
  Country: US (occurrence: US)
  Receive Date: 20160415
  Receipt Date: 20161214
  Transmission Date: 20170207
  Serious: Yes (Other)
  Sender: FDA-Public Use
  Company Number: US-TEVA-633475USA

PATIENT
  Sex: Female

DRUGS (16)
  1. METAXALONE. [Concomitant]
     Active Substance: METAXALONE
  2. JANUMET [Concomitant]
     Active Substance: METFORMIN HYDROCHLORIDE\SITAGLIPTIN PHOSPHATE
     Dosage: 500MG PER 1000MG
  3. SOMA [Concomitant]
     Active Substance: CARISOPRODOL
  4. ZECUITY [Suspect]
     Active Substance: SUMATRIPTAN SUCCINATE
     Indication: HEADACHE
     Dosage: 6.5 MG OVER 4 HOURS
     Route: 062
     Dates: start: 20160131
  5. ZETIA [Concomitant]
     Active Substance: EZETIMIBE
  6. TOVIAZ [Concomitant]
     Active Substance: FESOTERODINE FUMARATE
  7. STADOL [Concomitant]
     Active Substance: BUTORPHANOL TARTRATE
  8. PERCOCET [Concomitant]
     Active Substance: ACETAMINOPHEN\OXYCODONE HYDROCHLORIDE
     Dosage: 5-325MG
  9. SEROQUEL [Concomitant]
     Active Substance: QUETIAPINE FUMARATE
  10. NABUMETONE. [Concomitant]
     Active Substance: NABUMETONE
  11. CYMBALTA [Concomitant]
     Active Substance: DULOXETINE HYDROCHLORIDE
  12. GABAPENTIN. [Concomitant]
     Active Substance: GABAPENTIN
  13. TRAZODONE [Concomitant]
     Active Substance: TRAZODONE HYDROCHLORIDE
  14. ZECUITY [Suspect]
     Active Substance: SUMATRIPTAN SUCCINATE
     Indication: MIGRAINE
     Route: 062
     Dates: start: 20151216
  15. DEXRILANT [Concomitant]
  16. SUMATRIPTAN. [Concomitant]
     Active Substance: SUMATRIPTAN

REACTIONS (13)
  - Application site rash [Unknown]
  - Product adhesion issue [Unknown]
  - Application site discolouration [Recovered/Resolved]
  - Application site pain [Recovered/Resolved]
  - Application site burn [Recovered/Resolved]
  - Application site discomfort [Recovered/Resolved]
  - Application site paraesthesia [Recovered/Resolved]
  - Application site pruritus [Recovered/Resolved]
  - Bacterial infection [Not Recovered/Not Resolved]
  - Application site irritation [Recovered/Resolved]
  - Product leakage [Unknown]
  - Application site inflammation [Recovered/Resolved]
  - Application site erythema [Recovered/Resolved]

NARRATIVE: CASE EVENT DATE: 20160131
